FAERS Safety Report 5624628-6 (Version None)
Quarter: 2008Q1

REPORT INFORMATION
  Report Type: 
  Country: None (occurrence: None)
  Receive Date: 20080208
  Receipt Date: 20080125
  Transmission Date: 20080703
  Serious: Yes (Death)
  Sender: FDA-Public Use
  Company Number: US022395

PATIENT
  Age: 37 Year
  Sex: Male

DRUGS (7)
  1. MODAFINIL [Suspect]
     Dosage: ORAL
     Route: 048
  2. OXYCODONE HCL [Suspect]
  3. OLANZAPINE [Suspect]
  4. METHOCARBAMOL [Suspect]
  5. ZOLPIDEM [Suspect]
  6. ANTIHISTAMINE DECONGESTANT [Suspect]
  7. CITALOPRAM HYDROBROMIDE [Suspect]

REACTIONS (2)
  - CARDIAC ARREST [None]
  - RESPIRATORY ARREST [None]
